FAERS Safety Report 7730881-5 (Version None)
Quarter: 2011Q3

REPORT INFORMATION
  Report Type: 
  Country: None (occurrence: None)
  Receive Date: 20110906
  Receipt Date: 20110831
  Transmission Date: 20111222
  Serious: Yes (Other)
  Sender: FDA-Public Use
  Company Number: US-PFIZER INC-2011203716

PATIENT
  Sex: Female
  Weight: 65.76 kg

DRUGS (5)
  1. AMLODIPINE [Concomitant]
     Indication: HYPERTENSION
     Dosage: UNK
  2. TOVIAZ [Suspect]
     Indication: HYPERTONIC BLADDER
     Dosage: 8 MG, 1X/DAY
     Route: 048
     Dates: start: 20110701, end: 20110801
  3. AZOPT [Concomitant]
     Indication: OPEN ANGLE GLAUCOMA
     Dosage: UNK
  4. TIMOLOL [Concomitant]
     Indication: OPEN ANGLE GLAUCOMA
     Dosage: UNK
  5. LISINOPRIL [Concomitant]
     Indication: HYPERTENSION
     Dosage: UNK

REACTIONS (3)
  - VISION BLURRED [None]
  - OCULAR HYPERAEMIA [None]
  - LACRIMATION INCREASED [None]
